FAERS Safety Report 15653328 (Version 1)
Quarter: 2018Q4

REPORT INFORMATION
  Report Type: Spontaneous
  Country: FR (occurrence: FR)
  Receive Date: 20181124
  Receipt Date: 20181124
  Transmission Date: 20190205
  Serious: Yes (Death)
  Sender: FDA-Public Use
  Company Number: FR-TEVA-2018-FR-977680

PATIENT
  Age: 82 Year
  Sex: Male
  Weight: 67 kg

DRUGS (1)
  1. LEVOFLOXACINE [Suspect]
     Active Substance: LEVOFLOXACIN
     Indication: BACTERAEMIA
     Dosage: 1000 MILLIGRAM DAILY;
     Route: 048
     Dates: start: 20181003, end: 20181005

REACTIONS (2)
  - Cardio-respiratory arrest [Fatal]
  - Torsade de pointes [Fatal]

NARRATIVE: CASE EVENT DATE: 20181005
